FAERS Safety Report 9555914 (Version 1)
Quarter: 2013Q3

REPORT INFORMATION
  Report Type: Spontaneous
  Country: US (occurrence: None)
  Receive Date: 20130726
  Receipt Date: 20130726
  Transmission Date: 20140515
  Serious: Yes (Hospitalization)
  Sender: FDA-Public Use
  Company Number: UTC-023845

PATIENT
  Age: 47 Year
  Sex: Female
  Weight: 54.1 kg

DRUGS (3)
  1. REMODULIN (2.5 MILLIGRAM/MILLILITERS, INJECTION FOR INFUSION) (TREPROSTINIL SODIUM) [Suspect]
     Indication: COR PULMONALE CHRONIC
     Dosage: 2.88 UG/KG (0.002 UG/KG, 1 IN 1 MIN), SUBCUTANEOUS
     Route: 058
     Dates: start: 20120716
  2. REMODULIN (2.5 MILLIGRAM/MILLILITERS, INJECTION FOR INFUSION) (TREPROSTINIL SODIUM) [Suspect]
     Dosage: 2.88 UG/KG (0.002 UG/KG, 1 IN 1 MIN), SUBCUTANEOUS
     Route: 058
     Dates: start: 20120716
  3. ADCIRCA (TADALAFIL) [Concomitant]

REACTIONS (6)
  - Cellulitis [None]
  - Hypotension [None]
  - Dizziness [None]
  - Infusion site pain [None]
  - Fatigue [None]
  - Drug ineffective [None]
